FAERS Safety Report 5456024-9 (Version None)
Quarter: 2007Q3

REPORT INFORMATION
  Report Type: 
  Country: None (occurrence: None)
  Receive Date: 20070918
  Receipt Date: 20070228
  Transmission Date: 20080115
  Serious: Yes (Disabling)
  Sender: FDA-Public Use
  Company Number: US-ASTRAZENECA-2006UW23680

PATIENT
  Age: 15526 Day
  Sex: Female
  Weight: 49.1 kg

DRUGS (4)
  1. SEROQUEL [Suspect]
     Indication: ANXIETY
     Dosage: 25 MG, FOUR TO SIX TIMES A DAY
     Route: 048
  2. SEROQUEL [Suspect]
     Indication: PANIC ATTACK
     Dosage: 25 MG, FOUR TO SIX TIMES A DAY
     Route: 048
  3. SEROQUEL [Suspect]
     Dosage: 25 MG, FOUR TO SIX TIMES A DAY
     Route: 048
     Dates: start: 19990801, end: 20060101
  4. SEROQUEL [Suspect]
     Dosage: 25 MG, FOUR TO SIX TIMES A DAY
     Route: 048
     Dates: start: 19990801, end: 20060101

REACTIONS (2)
  - DIABETES MELLITUS [None]
  - PANCREATITIS [None]
